FAERS Safety Report 24767499 (Version 1)
Quarter: 2024Q4

REPORT INFORMATION
  Report Type: Spontaneous
  Country: US (occurrence: None)
  Receive Date: 20241221
  Receipt Date: 20241221
  Transmission Date: 20250115
  Serious: Yes (Disabling)
  Sender: Public
  Company Number: None

PATIENT
  Age: 24 Year
  Sex: Male
  Weight: 85.5 kg

DRUGS (2)
  1. LEXAPRO [Suspect]
     Active Substance: ESCITALOPRAM OXALATE
     Indication: Depression
     Dosage: 1 TABLET ORAL?
     Route: 048
  2. SERTRALINE [Concomitant]
     Active Substance: SERTRALINE HYDROCHLORIDE

REACTIONS (9)
  - Loss of libido [None]
  - Erectile dysfunction [None]
  - Genital hypoaesthesia [None]
  - Feeling cold [None]
  - Anorgasmia [None]
  - Emotional disorder [None]
  - Hypohidrosis [None]
  - Fatigue [None]
  - Quality of life decreased [None]

NARRATIVE: CASE EVENT DATE: 20220715
